FAERS Safety Report 10051724 (Version 1)
Quarter: 2014Q2

REPORT INFORMATION
  Report Type: Spontaneous
  Country: US (occurrence: HK)
  Receive Date: 20140401
  Receipt Date: 20140401
  Transmission Date: 20141212
  Serious: Yes (Other)
  Sender: FDA-Public Use
  Company Number: US-MERCK-1403HKG013340

PATIENT
  Age: 55 Year
  Sex: Female

DRUGS (2)
  1. JANUVIA [Suspect]
     Indication: TYPE 2 DIABETES MELLITUS
     Dosage: 100 MG,  UNKNOWN
     Route: 048
  2. METFORMIN [Suspect]

REACTIONS (1)
  - Pancreatic carcinoma [Unknown]
